FAERS Safety Report 6259662-9 (Version None)
Quarter: 2009Q3

REPORT INFORMATION
  Report Type: 
  Country: None (occurrence: None)
  Receive Date: 20090706
  Receipt Date: 20090706
  Transmission Date: 20100115
  Serious: Yes (Other)
  Sender: FDA-Public Use
  Company Number: None

PATIENT
  Sex: Female

DRUGS (3)
  1. HYROMET COUGH SYRUP HIGH LEVELS OF CODEIN AND N/A [Suspect]
     Indication: COUGH
  2. HYROMET COUGH SYRUP HIGH LEVELS OF CODEIN AND N/A [Suspect]
     Indication: RESPIRATORY TRACT CONGESTION
  3. HYDROCODENE HIGH LEVELS OF CODEINE AND N/A [Suspect]
     Indication: UPPER RESPIRATORY TRACT CONGESTION

REACTIONS (4)
  - DRUG DEPENDENCE [None]
  - DRUG TOXICITY [None]
  - IMMOBILE [None]
  - IMPAIRED DRIVING ABILITY [None]
